FAERS Safety Report 7270136-9 (Version None)
Quarter: 2010Q4

REPORT INFORMATION
  Report Type: 
  Country: None (occurrence: None)
  Receive Date: 20101130
  Receipt Date: 20090901
  Transmission Date: 20110411
  Serious: Yes (Hospitalization)
  Sender: FDA-Public Use
  Company Number: 2009SP023296

PATIENT
  Age: 48 Year
  Sex: Female
  Weight: 70.3075 kg

DRUGS (5)
  1. NUVARING [Suspect]
     Indication: CONTRACEPTION
     Dosage: 1 DF
     Dates: start: 20061101, end: 20070317
  2. NUVARING [Suspect]
     Indication: DYSMENORRHOEA
     Dosage: 1 DF
     Dates: start: 20061101, end: 20070317
  3. NUVARING [Suspect]
     Indication: MENORRHAGIA
     Dosage: 1 DF
     Dates: start: 20061101, end: 20070317
  4. LEVOTHYROXINE [Concomitant]
  5. MAXALT [Concomitant]

REACTIONS (1)
  - PULMONARY EMBOLISM [None]
